FAERS Safety Report 18642009 (Version 1)
Quarter: 2020Q4

REPORT INFORMATION
  Report Type: Spontaneous
  Country: US (occurrence: US)
  Receive Date: 20201221
  Receipt Date: 20201221
  Transmission Date: 20210114
  Serious: Yes (Death, Hospitalization, Other)
  Sender: FDA-Public Use
  Company Number: US-SA-2020SA360408

PATIENT

DRUGS (1)
  1. DIPHENHYDRAMINE/PARACETAMOL [Suspect]
     Active Substance: ACETAMINOPHEN\DIPHENHYDRAMINE
     Dosage: 50-100 TABLETS IN 24 H

REACTIONS (4)
  - Pulseless electrical activity [Fatal]
  - Cardiotoxicity [Fatal]
  - Sinus tachycardia [Fatal]
  - Overdose [Fatal]
